FAERS Safety Report 25836495 (Version 2)
Quarter: 2025Q4

REPORT INFORMATION
  Report Type: Report from Study
  Country: US (occurrence: US)
  Receive Date: 20250923
  Receipt Date: 20251017
  Transmission Date: 20260118
  Serious: No
  Sender: DR REDDYS
  Company Number: US-DRL-USA-USA/2025/09/013833

PATIENT
  Sex: Male
  Weight: 69.99 kg

DRUGS (1)
  1. JAVYGTOR [Suspect]
     Active Substance: SAPROPTERIN DIHYDROCHLORIDE
     Indication: Hyperphenylalaninaemia
     Dosage: DOSE: 10 TABLETS
     Route: 048

REACTIONS (3)
  - Product dose omission issue [Unknown]
  - Fatigue [Unknown]
  - Product dose omission in error [Unknown]
